FAERS Safety Report 5864729-0 (Version None)
Quarter: 2008Q3

REPORT INFORMATION
  Report Type: 
  Country: None (occurrence: None)
  Receive Date: 20080829
  Receipt Date: 20080619
  Transmission Date: 20090109
  Serious: No
  Sender: FDA-Public Use
  Company Number: US-BAYER-200826800NA

PATIENT
  Age: 22 Year
  Sex: Female
  Weight: 63 kg

DRUGS (1)
  1. MIRENA [Suspect]
     Indication: CONTRACEPTION
     Route: 015
     Dates: start: 20080404

REACTIONS (6)
  - BREAST TENDERNESS [None]
  - DEPRESSION [None]
  - FATIGUE [None]
  - GENITAL HAEMORRHAGE [None]
  - HORMONE LEVEL ABNORMAL [None]
  - MOOD SWINGS [None]
